FAERS Safety Report 6445099-6 (Version None)
Quarter: 2009Q4

REPORT INFORMATION
  Report Type: 
  Country: None (occurrence: None)
  Receive Date: 20091118
  Receipt Date: 20091111
  Transmission Date: 20100525
  Serious: Yes (Hospitalization)
  Sender: FDA-Public Use
  Company Number: IT-BRISTOL-MYERS SQUIBB COMPANY-14855514

PATIENT
  Age: 45 Year
  Sex: Female

DRUGS (1)
  1. ABILIFY [Suspect]
     Indication: AGITATION
     Dosage: 1 DF = 1 VIAL
     Route: 030
     Dates: start: 20091111, end: 20091111

REACTIONS (2)
  - CARDIAC FAILURE [None]
  - PULMONARY OEDEMA [None]
